FAERS Safety Report 4912576-6 (Version None)
Quarter: 2006Q1

REPORT INFORMATION
  Report Type: 
  Country: None (occurrence: None)
  Receive Date: 20060215
  Receipt Date: 20060209
  Transmission Date: 20060701
  Serious: Yes (Other)
  Sender: FDA-Public Use
  Company Number: US-GLAXOSMITHKLINE-A0593082A

PATIENT

DRUGS (7)
  1. REQUIP [Suspect]
     Indication: RESTLESS LEGS SYNDROME
     Dosage: .25MG PER DAY
     Route: 048
  2. CYMBALTA [Concomitant]
  3. CONCERTA [Concomitant]
  4. TRAZODONE [Concomitant]
  5. SYNTHROID [Concomitant]
  6. ESTRATEST [Concomitant]
  7. LAMICTAL [Concomitant]

REACTIONS (1)
  - PSORIASIS [None]
